FAERS Safety Report 22169506 (Version 1)
Quarter: 2023Q2

REPORT INFORMATION
  Report Type: Spontaneous
  Country: US (occurrence: None)
  Receive Date: 20230404
  Receipt Date: 20230404
  Transmission Date: 20230722
  Serious: No
  Sender: FDA-Public Use
  Company Number: US-ADAMAS Pharma-ADM202204-000753

PATIENT
  Age: 61 Year
  Sex: Female

DRUGS (2)
  1. OSMOLEX ER [Suspect]
     Active Substance: AMANTADINE
     Indication: Dyskinesia
     Route: 048
  2. OSMOLEX ER [Suspect]
     Active Substance: AMANTADINE
     Indication: Parkinson^s disease
     Route: 048
     Dates: start: 20220301, end: 20220328

REACTIONS (3)
  - Erythema [Recovered/Resolved]
  - Diplopia [Unknown]
  - Hallucination [Unknown]

NARRATIVE: CASE EVENT DATE: 20220302
